FAERS Safety Report 5479542-6 (Version None)
Quarter: 2007Q4

REPORT INFORMATION
  Report Type: 
  Country: None (occurrence: None)
  Receive Date: 20071008
  Receipt Date: 20070927
  Transmission Date: 20080405
  Serious: Yes (Other)
  Sender: FDA-Public Use
  Company Number: US-ROCHE-517191

PATIENT
  Sex: Female

DRUGS (1)
  1. BONIVA [Suspect]
     Indication: OSTEOPOROSIS
     Dosage: THREE TOTAL DOSES GIVEN OVER AN UNSPECIFIED PERIOD OF TIME.
     Route: 042

REACTIONS (1)
  - LYMPHADENOPATHY [None]
